FAERS Safety Report 7858436-2 (Version None)
Quarter: 2011Q4

REPORT INFORMATION
  Report Type: 
  Country: None (occurrence: None)
  Receive Date: 20111027
  Receipt Date: 20111006
  Transmission Date: 20120403
  Serious: Yes (Hospitalization, Other)
  Sender: FDA-Public Use
  Company Number: CA-JNJFOC-20110800585

PATIENT
  Sex: Female

DRUGS (2)
  1. REMICADE [Suspect]
     Route: 042
     Dates: start: 20100501
  2. REMICADE [Suspect]
     Indication: CROHN'S DISEASE
     Route: 042
     Dates: start: 20110601

REACTIONS (6)
  - CHEST DISCOMFORT [None]
  - PYREXIA [None]
  - FLUSHING [None]
  - DIZZINESS [None]
  - COLITIS ULCERATIVE [None]
  - INFUSION RELATED REACTION [None]
